FAERS Safety Report 14804456 (Version 1)
Quarter: 2018Q2

REPORT INFORMATION
  Report Type: Report from Study
  Country: GB (occurrence: IT)
  Receive Date: 20180425
  Receipt Date: 20180425
  Transmission Date: 20180711
  Serious: Yes (Hospitalization)
  Sender: FDA-Public Use
  Company Number: GB-BAYER-2018-074374

PATIENT
  Age: 81 Year
  Sex: Female

DRUGS (10)
  1. CARDIOASPIRIN [Suspect]
     Active Substance: ASPIRIN
     Dosage: 100 MG, QD
     Route: 048
  2. BARNIDIPINE [Concomitant]
     Active Substance: BARNIDIPINE
  3. SIMVASTATIN. [Concomitant]
     Active Substance: SIMVASTATIN
     Dosage: UNK
     Route: 048
  4. LANOXIN [Concomitant]
     Active Substance: DIGOXIN
     Dosage: UNK
     Route: 048
  5. KEPPRA [Concomitant]
     Active Substance: LEVETIRACETAM
     Dosage: UNK
     Route: 048
  6. COUMADIN [Suspect]
     Active Substance: WARFARIN SODIUM
     Dosage: UNK
     Route: 048
  7. OSIPINE [Concomitant]
     Active Substance: BARNIDIPINE HYDROCHLORIDE
     Dosage: UNK
  8. DOXAZOSIN [Concomitant]
     Active Substance: DOXAZOSIN\DOXAZOSIN MESYLATE
     Dosage: 4 MG, UNK
  9. ALLOPURINOL SANDOZ [Concomitant]
     Active Substance: ALLOPURINOL
     Dosage: UNK
  10. BISOPROLOL [BISOPROLOL FUMARATE,HYDROCHLOROTHIAZIDE] [Concomitant]
     Dosage: UNK

REACTIONS (6)
  - Hypokinesia [Recovered/Resolved]
  - Poverty of speech [Recovered/Resolved]
  - Subdural haematoma [Recovered/Resolved]
  - Drug interaction [Recovered/Resolved]
  - Gait disturbance [Recovered/Resolved]
  - Bradyphrenia [Recovered/Resolved]

NARRATIVE: CASE EVENT DATE: 20180312
